FAERS Safety Report 8925895 (Version 2)
Quarter: 2013Q1

REPORT INFORMATION
  Report Type: Spontaneous
  Country: US (occurrence: US)
  Receive Date: 20121126
  Receipt Date: 20130201
  Transmission Date: 20140127
  Serious: Yes (Hospitalization, Other)
  Sender: FDA-Public Use
  Company Number: PHEH2012US022729

PATIENT
  Age: 55 Year
  Sex: Female

DRUGS (2)
  1. GILENYA [Suspect]
     Dosage: 0.5 MG, DAILY
     Route: 048
     Dates: start: 201203
  2. AVONEX [Concomitant]
     Dosage: 30 MG, QW
     Route: 030
     Dates: start: 2006, end: 201201

REACTIONS (2)
  - Dehydration [Unknown]
  - Multiple sclerosis [Unknown]
